FAERS Safety Report 16160072 (Version 1)
Quarter: 2019Q2

REPORT INFORMATION
  Report Type: Spontaneous
  Country: GB (occurrence: GB)
  Receive Date: 20190404
  Receipt Date: 20190404
  Transmission Date: 20190711
  Serious: Yes (Hospitalization)
  Sender: FDA-Public Use
  Company Number: GB-TEVA-2019-GB-1032983

PATIENT
  Age: 68 Year
  Sex: Male

DRUGS (9)
  1. GALEN LTD CO-CODAMOL [Concomitant]
     Dosage: 30/500MG, 2, FOUR TIMES PER DAY
  2. PREDNISOLONE. [Concomitant]
     Active Substance: PREDNISOLONE
     Dosage: 30 MILLIGRAM DAILY; IN THE MORNING.
     Dates: start: 20190205
  3. CETIRIZINE DIHYDROCHLORIDE [Concomitant]
     Active Substance: CETIRIZINE HYDROCHLORIDE
     Dosage: 10 MILLIGRAM DAILY; IN THE MORNING.
  4. BUMETANIDE. [Suspect]
     Active Substance: BUMETANIDE
     Indication: POLYURIA
     Dosage: 1 MILLIGRAM DAILY; EACH MORNING.
     Route: 048
     Dates: start: 20190301, end: 20190305
  5. FOSTAIR [Concomitant]
     Active Substance: BECLOMETHASONE\FORMOTEROL
     Dosage: 4 DOSAGE FORMS DAILY; 100/6
  6. SPIRIVA [Concomitant]
     Active Substance: TIOTROPIUM BROMIDE MONOHYDRATE
     Dosage: 5 MICROGRAM DAILY; PUFFS, IN THE MORNING.
  7. PARACETAMOL [Concomitant]
     Active Substance: ACETAMINOPHEN
     Dosage: TAKE 2, FOUR TIMES PER DAY, IF NOT TAKING CO-CODAMOL TABLETS.
  8. SALBUTAMOL [Concomitant]
     Active Substance: ALBUTEROL
     Dosage: 2 PUFFS FOUR TIMES DAILY
  9. INDAPAMIDE. [Concomitant]
     Active Substance: INDAPAMIDE
     Dosage: 2.5 MILLIGRAM DAILY; REPLACED BY BUMETANIDE
     Dates: end: 20190228

REACTIONS (5)
  - Condition aggravated [Unknown]
  - Dyspnoea [Unknown]
  - Oedema peripheral [Unknown]
  - Cough [Unknown]
  - Hyponatraemia [Recovering/Resolving]

NARRATIVE: CASE EVENT DATE: 20190301
